FAERS Safety Report 17970676 (Version 1)
Quarter: 2020Q3

REPORT INFORMATION
  Report Type: Report from Study
  Country: BR (occurrence: BR)
  Receive Date: 20200701
  Receipt Date: 20200701
  Transmission Date: 20201103
  Serious: Yes (Other)
  Sender: FDA-Public Use
  Company Number: NVSC2020BR181935

PATIENT
  Sex: Male

DRUGS (1)
  1. GALVUS MET [Suspect]
     Active Substance: METFORMIN HYDROCHLORIDE\VILDAGLIPTIN
     Indication: DIABETES MELLITUS
     Dosage: 2 DF, QD (50/100 MG)
     Route: 065

REACTIONS (4)
  - Lung neoplasm malignant [Unknown]
  - Pulmonary mass [Unknown]
  - Metastasis [Unknown]
  - Head injury [Recovered/Resolved]
